FAERS Safety Report 7510974-8 (Version None)
Quarter: 2011Q2

REPORT INFORMATION
  Report Type: 
  Country: None (occurrence: None)
  Receive Date: 20110531
  Receipt Date: 20110525
  Transmission Date: 20111010
  Serious: No
  Sender: FDA-Public Use
  Company Number: US-PFIZER INC-2011113946

PATIENT
  Sex: Female

DRUGS (2)
  1. PRISTIQ [Suspect]
     Dosage: 1/2 A TABLET OF 50MG DAILY
  2. PRISTIQ [Suspect]
     Dosage: 50 MG, 1X/DAY

REACTIONS (2)
  - INSOMNIA [None]
  - NERVOUSNESS [None]
